FAERS Safety Report 12629387 (Version 1)
Quarter: 2016Q3

REPORT INFORMATION
  Report Type: Spontaneous
  Country: US (occurrence: US)
  Receive Date: 20160808
  Receipt Date: 20160808
  Transmission Date: 20161109
  Serious: Yes (Hospitalization, Other)
  Sender: FDA-Public Use
  Company Number: US-BAYER-2016-148286

PATIENT
  Age: 60 Year
  Sex: Male

DRUGS (4)
  1. XARELTO [Interacting]
     Active Substance: RIVAROXABAN
     Indication: DEEP VEIN THROMBOSIS
     Dosage: 20 MG, QD
     Route: 048
     Dates: start: 2013
  2. SIMVASTATIN. [Concomitant]
     Active Substance: SIMVASTATIN
     Indication: BLOOD CHOLESTEROL INCREASED
     Dosage: 40 MG, QD
  3. ASCORBIC ACID W/FOLIC ACID/IRON/VITAMIN B12 [Concomitant]
     Indication: ANAEMIA
     Dosage: UNK UNK, QD
     Route: 048
  4. BAYER LOW DOSE [Suspect]
     Active Substance: ASPIRIN
     Indication: ANTICOAGULANT THERAPY
     Dosage: 162 MG, QD
     Route: 048

REACTIONS (8)
  - Neoplasm malignant [None]
  - Labelled drug-drug interaction medication error [None]
  - Haematochezia [None]
  - Tumour haemorrhage [None]
  - Drug administration error [None]
  - Product use issue [None]
  - Drug hypersensitivity [None]
  - Thrombophlebitis [None]

NARRATIVE: CASE EVENT DATE: 20160713
